FAERS Safety Report 25936405 (Version 1)
Quarter: 2025Q4

REPORT INFORMATION
  Report Type: Spontaneous
  Country: US (occurrence: US)
  Receive Date: 20251017
  Receipt Date: 20251017
  Transmission Date: 20260118
  Serious: Yes (Other)
  Sender: BIOVITRUM
  Company Number: US-BIOVITRUM-2025-US-014074

PATIENT
  Sex: Female

DRUGS (2)
  1. KINERET [Suspect]
     Active Substance: ANAKINRA
     Indication: Still^s disease
     Dates: start: 2024
  2. ILARIS [Suspect]
     Active Substance: CANAKINUMAB
     Indication: Dermatomyositis

REACTIONS (6)
  - Off label use [Unknown]
  - Colitis [Unknown]
  - Still^s disease [Unknown]
  - Product availability issue [Unknown]
  - Insurance issue [Unknown]
  - Condition aggravated [Unknown]
